FAERS Safety Report 5722737-4 (Version None)
Quarter: 2008Q2

REPORT INFORMATION
  Report Type: 
  Country: None (occurrence: None)
  Receive Date: 20080429
  Receipt Date: 20080421
  Transmission Date: 20081010
  Serious: No
  Sender: FDA-Public Use
  Company Number: US-BAXTER-2008BH003991

PATIENT
  Age: 57 Year
  Sex: Male
  Weight: 109 kg

DRUGS (3)
  1. HEMOFIL M [Suspect]
     Indication: FACTOR VIII DEFICIENCY
     Route: 042
     Dates: start: 20080201
  2. HEMOFIL M [Suspect]
     Dosage: DOSE UNIT:UNKNOWN
     Route: 042
     Dates: start: 19800101
  3. DILANTIN                                /CAN/ [Concomitant]
     Indication: CONVULSION
     Route: 048
     Dates: start: 19600101

REACTIONS (1)
  - HEPATIC CIRRHOSIS [None]
